FAERS Safety Report 18123042 (Version 2)
Quarter: 2020Q3

REPORT INFORMATION
  Report Type: Spontaneous
  Country: AU (occurrence: AU)
  Receive Date: 20200807
  Receipt Date: 20200911
  Transmission Date: 20201103
  Serious: Yes (Other)
  Sender: FDA-Public Use
  Company Number: AU-STRIDES ARCOLAB LIMITED-2020SP008847

PATIENT
  Age: 69 Year
  Sex: Male

DRUGS (6)
  1. TACROLIMUS. [Suspect]
     Active Substance: TACROLIMUS
     Dosage: UNK, ADJUSTED TO LOWEST ACCEPTABLE LEVEL
     Route: 065
  2. TACROLIMUS. [Suspect]
     Active Substance: TACROLIMUS
     Indication: LUNG TRANSPLANT
     Dosage: UNK
     Route: 065
  3. MYCOPHENOLATE MOFETIL. [Suspect]
     Active Substance: MYCOPHENOLATE MOFETIL
     Indication: LUNG TRANSPLANT
     Dosage: UNK
     Route: 065
  4. MYCOPHENOLATE MOFETIL. [Suspect]
     Active Substance: MYCOPHENOLATE MOFETIL
     Dosage: UNK, ADJUSTED TO LOWEST ACCEPTABLE LEVEL
     Route: 065
  5. PREDNISOLONE. [Suspect]
     Active Substance: PREDNISOLONE
     Indication: LUNG TRANSPLANT
     Dosage: UNK
     Route: 065
  6. PREDNISOLONE. [Suspect]
     Active Substance: PREDNISOLONE
     Dosage: UNK, ADJUSTED TO LOWEST ACCEPTABLE LEVEL
     Route: 065

REACTIONS (14)
  - Oxidative stress [Recovered/Resolved]
  - Adenovirus infection [Recovered/Resolved]
  - Off label use [Unknown]
  - Human polyomavirus infection [Recovered/Resolved]
  - Hypogammaglobulinaemia [Recovered/Resolved]
  - Pseudomonas infection [Recovered/Resolved]
  - Enterobacter infection [Recovered/Resolved]
  - Alveolar proteinosis [Recovered/Resolved]
  - Aspergillus infection [Recovered/Resolved]
  - Transplant rejection [Unknown]
  - Dyspnoea [Recovered/Resolved]
  - Atypical mycobacterial infection [Recovered/Resolved]
  - Respiratory tract infection [Recovered/Resolved]
  - Lung opacity [Recovered/Resolved]
